FAERS Safety Report 8108602 (Version 7)
Quarter: 2012Q4

REPORT INFORMATION
  Report Type: 
  Country: US (occurrence: US)
  Receive Date: 20110826
  Receipt Date: 20121119
  Transmission Date: 20130627
  Serious: Yes (Hospitalization, Other)
  Sender: FDA-Public Use
  Company Number: US-ACTELION-A-US2008-19717

PATIENT
  Age: 73 Year
  Sex: Female

DRUGS (4)
  1. TRACLEER [Suspect]
     Indication: PULMONARY HYPERTENSION
     Dosage: UNK mg, UNK
     Route: 048
     Dates: start: 20051031
  2. ADCIRCA [Concomitant]
  3. OXYGEN [Concomitant]
  4. CALCIUM CHANNEL BLOCKERS [Concomitant]

REACTIONS (19)
  - Chronic obstructive pulmonary disease [Unknown]
  - Bronchitis [Unknown]
  - Obstructive airways disorder [Unknown]
  - Hypotension [Unknown]
  - Pulmonary mass [Unknown]
  - Dehydration [Unknown]
  - Neuropathy peripheral [Unknown]
  - Pneumonia [Recovering/Resolving]
  - Anaemia [Recovering/Resolving]
  - Fall [Unknown]
  - Contusion [Unknown]
  - Blood count abnormal [Recovering/Resolving]
  - Pain [Unknown]
  - Renal failure [Recovering/Resolving]
  - Pyrexia [Recovering/Resolving]
  - Cough [Recovering/Resolving]
  - Urinary tract infection [Recovering/Resolving]
  - Macular degeneration [Unknown]
  - Dyspnoea [Unknown]
